FAERS Safety Report 4895424-2 (Version None)
Quarter: 2006Q1

REPORT INFORMATION
  Report Type: 
  Country: None (occurrence: None)
  Receive Date: 20060130
  Receipt Date: 20051003
  Transmission Date: 20060701
  Serious: No
  Sender: FDA-Public Use
  Company Number: US-GLAXOSMITHKLINE-A0577005A

PATIENT
  Age: 9 Year
  Sex: Male

DRUGS (3)
  1. EPIVIR [Suspect]
     Indication: HIV INFECTION
     Dosage: 94MG TWICE PER DAY
     Route: 048
     Dates: start: 20050401
  2. ZERIT [Concomitant]
  3. VIREAD [Concomitant]

REACTIONS (1)
  - EYELID PTOSIS [None]
